FAERS Safety Report 24031225 (Version 1)
Quarter: 2024Q2

REPORT INFORMATION
  Report Type: Spontaneous
  Country: US (occurrence: US)
  Receive Date: 20240629
  Receipt Date: 20240629
  Transmission Date: 20240716
  Serious: No
  Sender: FDA-Public Use
  Company Number: US-TEVA-VS-3212027

PATIENT
  Age: 79 Year
  Sex: Female

DRUGS (3)
  1. AUSTEDO [Suspect]
     Active Substance: DEUTETRABENAZINE
     Indication: Parkinson^s disease
     Dosage: 9 MG TABLET, TAKE 2 TABLETS TWICE A DAY
     Route: 065
     Dates: start: 202404
  2. AUSTEDO [Suspect]
     Active Substance: DEUTETRABENAZINE
     Indication: Parkinson^s disease
     Dosage: 12 MG TWICE A DAY
     Route: 065
  3. AUSTEDO [Suspect]
     Active Substance: DEUTETRABENAZINE
     Indication: Parkinson^s disease
     Dosage: 9 MG TABLET, TAKE 2 TABLETS TWICE A DAY
     Route: 065

REACTIONS (3)
  - Restlessness [Not Recovered/Not Resolved]
  - Therapeutic product effective for unapproved indication [Unknown]
  - Off label use [Unknown]
